FAERS Safety Report 4996885-0 (Version None)
Quarter: 2006Q2

REPORT INFORMATION
  Report Type: 
  Country: None (occurrence: None)
  Receive Date: 20060505
  Receipt Date: 20060418
  Transmission Date: 20061013
  Serious: Yes (Hospitalization, Other)
  Sender: FDA-Public Use
  Company Number: US-2006-004746

PATIENT
  Age: 61 Year
  Sex: Male
  Weight: 71 kg

DRUGS (12)
  1. CAMPATH [Suspect]
     Indication: BONE MARROW CONDITIONING REGIMEN
     Dosage: 50 MG D-7 TO D-3, INTRAVENOUS
     Route: 042
     Dates: start: 20050527, end: 20050531
  2. FLUDARABINE [Suspect]
     Indication: BONE MARROW CONDITIONING REGIMEN
     Dosage: 25 MG/M2 D5-D, INTRAVENOUS
     Route: 042
     Dates: start: 20050529, end: 20050602
  3. LEUKINE [Suspect]
     Indication: COLONY STIMULATING FACTOR PROPHYLAXIS
     Dosage: 250 UG/DAY D+3 UNTIL ANC}1000, SUBCUTANEOUS
     Route: 058
     Dates: start: 20050606
  4. CYCLOPHOSPHAMIDE [Suspect]
     Indication: BONE MARROW CONDITIONING REGIMEN
     Dosage: 45 MG/KG D-4, -3, INTRAVENOUS
     Route: 042
     Dates: start: 20050530, end: 20050531
  5. MESNA [Suspect]
     Indication: BONE MARROW CONDITIONING REGIMEN
     Dosage: 12 MG/KG (DAILY DOSE 48MG/KG)
     Dates: start: 20050530
  6. CYCLOSPORINE [Concomitant]
  7. CIDOFOVIR [Concomitant]
  8. ELECTROLYTE SOLUTIONS [Concomitant]
  9. I.V. SOLUTIONS [Concomitant]
  10. ACYCLOVIR [Concomitant]
  11. PENTAMIDINE ISETHIONATE [Concomitant]
  12. SUDAFED 12 HOUR [Concomitant]

REACTIONS (16)
  - BACTERAEMIA [None]
  - BLOOD ALKALINE PHOSPHATASE INCREASED [None]
  - BLOOD GLUCOSE INCREASED [None]
  - BLOOD LACTATE DEHYDROGENASE INCREASED [None]
  - CENTRAL LINE INFECTION [None]
  - DEHYDRATION [None]
  - DRY SKIN [None]
  - HAEMOLYSIS [None]
  - LYMPHADENOPATHY [None]
  - NECROSIS [None]
  - POOR VENOUS ACCESS [None]
  - SINUSITIS [None]
  - TONGUE DISORDER [None]
  - TONSILLAR HYPERTROPHY [None]
  - TRANSFUSION REACTION [None]
  - URINARY TRACT INFECTION BACTERIAL [None]
